FAERS Safety Report 18314826 (Version 7)
Quarter: 2021Q3

REPORT INFORMATION
  Report Type: Spontaneous
  Country: CA (occurrence: CA)
  Receive Date: 20200926
  Receipt Date: 20210909
  Transmission Date: 20211014
  Serious: Yes (Hospitalization, Other)
  Sender: FDA-Public Use
  Company Number: CA-CELLTRION INC.-2020CA023964

PATIENT

DRUGS (11)
  1. INFLECTRA [Suspect]
     Active Substance: INFLIXIMAB-DYYB
     Dosage: 10 MG/KG AT WEEK 0 AND 2
     Route: 042
     Dates: start: 20200714
  2. INFLECTRA [Suspect]
     Active Substance: INFLIXIMAB-DYYB
     Dosage: 5 MG/KG AT WEEK 6, THEN EVERY 8 WEEKS
     Route: 042
     Dates: start: 20210518
  3. INFLECTRA [Suspect]
     Active Substance: INFLIXIMAB-DYYB
     Dosage: 5 MG/KG AT WEEK 6, THEN EVERY 8 WEEKS
     Route: 042
     Dates: start: 20201006
  4. INFLECTRA [Suspect]
     Active Substance: INFLIXIMAB-DYYB
     Dosage: 5 MG/KG AT WEEK 6, THEN EVERY 8 WEEKS
     Route: 042
     Dates: start: 20200813
  5. INFLECTRA [Suspect]
     Active Substance: INFLIXIMAB-DYYB
     Dosage: 5 MG/KG AT WEEK 6, THEN EVERY 8 WEEKS
     Route: 042
     Dates: start: 20201130
  6. BETNESOL [BETAMETHASONE SODIUM PHOSPHATE] [Concomitant]
     Active Substance: BETAMETHASONE SODIUM PHOSPHATE
     Dosage: UNK
  7. INFLECTRA [Suspect]
     Active Substance: INFLIXIMAB-DYYB
     Dosage: 5 MG/KG AT WEEK 6, THEN EVERY 8 WEEKS
     Route: 042
     Dates: start: 20210126
  8. INFLECTRA [Suspect]
     Active Substance: INFLIXIMAB-DYYB
     Indication: COLITIS ULCERATIVE
     Dosage: 10 MG/KG AT WEEK 0 AND 2
     Route: 042
     Dates: start: 20200630, end: 20200714
  9. INFLECTRA [Suspect]
     Active Substance: INFLIXIMAB-DYYB
     Dosage: 5 MG/KG AT WEEK 6, THEN EVERY 8 WEEKS
     Route: 042
     Dates: start: 20210713
  10. INFLECTRA [Suspect]
     Active Substance: INFLIXIMAB-DYYB
     Dosage: 5 MG/KG AT WEEK 6, THEN EVERY 8 WEEKS
     Route: 042
     Dates: start: 20210323
  11. INFLECTRA [Suspect]
     Active Substance: INFLIXIMAB-DYYB
     Dosage: 10 MG/KG AT WEEK 0 AND 2
     Route: 042
     Dates: start: 20200702

REACTIONS (8)
  - Off label use [Unknown]
  - Intentional product use issue [Unknown]
  - Blood pressure increased [Unknown]
  - Heart rate abnormal [Unknown]
  - Weight fluctuation [Unknown]
  - Incorrect dose administered [Unknown]
  - Clostridium difficile infection [Recovering/Resolving]
  - Product use issue [Unknown]

NARRATIVE: CASE EVENT DATE: 20200630
